FAERS Safety Report 18014927 (Version 4)
Quarter: 2020Q3

REPORT INFORMATION
  Report Type: Spontaneous
  Country: US (occurrence: US)
  Receive Date: 20200713
  Receipt Date: 20200819
  Transmission Date: 20201103
  Serious: Yes (Other)
  Sender: FDA-Public Use
  Company Number: US-LEXICON PHARMACEUTICALS, INC-20-1606-00516

PATIENT
  Age: 72 Year
  Sex: Male

DRUGS (11)
  1. FUROSEMIDE. [Concomitant]
     Active Substance: FUROSEMIDE
  2. ALPRAZOLAM. [Concomitant]
     Active Substance: ALPRAZOLAM
  3. CREON [Concomitant]
     Active Substance: PANCRELIPASE AMYLASE\PANCRELIPASE LIPASE\PANCRELIPASE PROTEASE
  4. XERMELO [Suspect]
     Active Substance: TELOTRISTAT ETHYL
     Indication: FLUSHING
  5. ELIQUIS [Concomitant]
     Active Substance: APIXABAN
  6. OCTREOSCAN [Concomitant]
     Active Substance: INDIUM IN-111 CHLORIDE\INDIUM IN-111 PENTETREOTIDE
  7. PROBIOTIC [Concomitant]
     Active Substance: PROBIOTICS NOS
  8. AMLODIPINE BESYLATE. [Concomitant]
     Active Substance: AMLODIPINE BESYLATE
  9. NAPROXEN. [Concomitant]
     Active Substance: NAPROXEN
  10. EFFERVESCENT POTASSIUM [Concomitant]
  11. XERMELO [Suspect]
     Active Substance: TELOTRISTAT ETHYL
     Indication: CARCINOID SYNDROME
     Dates: start: 20200624

REACTIONS (3)
  - Suicidal ideation [Unknown]
  - Paranoia [Not Recovered/Not Resolved]
  - Off label use [Not Recovered/Not Resolved]
